FAERS Safety Report 19568103 (Version 1)
Quarter: 2021Q3

REPORT INFORMATION
  Report Type: Spontaneous
  Country: US (occurrence: US)
  Receive Date: 20210716
  Receipt Date: 20210716
  Transmission Date: 20211014
  Serious: No
  Sender: FDA-Public Use
  Company Number: US-GW PHARMA-202107USGW03403

PATIENT

DRUGS (2)
  1. EPIDIOLEX [Suspect]
     Active Substance: CANNABIDIOL
     Indication: EPILEPSY
     Dosage: 9.53 MG/KG/DAY, 320 MILLIGRAM, BID
     Route: 048
     Dates: start: 202106, end: 2021
  2. EPIDIOLEX [Suspect]
     Active Substance: CANNABIDIOL
     Dosage: UNK, INCREASE IN DOSE (NEW DOSE WILL BE 10.13 MG/KG/DAY, 340, MILLIGRAM BID AND WAS SHIPPING ON 09?J
     Route: 048
     Dates: start: 2021

REACTIONS (3)
  - Vision blurred [Recovering/Resolving]
  - Balance disorder [Recovering/Resolving]
  - Decreased appetite [Recovering/Resolving]

NARRATIVE: CASE EVENT DATE: 2021
